FAERS Safety Report 13873356 (Version 1)
Quarter: 2017Q3

REPORT INFORMATION
  Report Type: Spontaneous
  Country: US (occurrence: US)
  Receive Date: 20170816
  Receipt Date: 20170816
  Transmission Date: 20171127
  Serious: Yes (Other)
  Sender: FDA-Public Use
  Company Number: US-MALLINCKRODT-T201605569

PATIENT
  Age: 57 Year
  Sex: Male
  Weight: 82 kg

DRUGS (3)
  1. OXYCODONE [Suspect]
     Active Substance: OXYCODONE
     Indication: PAIN
     Dosage: 5 MG, TID (6A, 2P, 10P)
     Route: 048
     Dates: start: 20170222
  2. BENADRYL [Suspect]
     Active Substance: DIPHENHYDRAMINE HYDROCHLORIDE
     Indication: INFLUENZA
     Dosage: UNK
     Route: 065
  3. OXYCODONE [Suspect]
     Active Substance: OXYCODONE
     Indication: PAIN
     Dosage: 5 MG, TID
     Route: 048
     Dates: start: 2016, end: 201702

REACTIONS (16)
  - Hyperhidrosis [Not Recovered/Not Resolved]
  - Drug effect increased [Recovered/Resolved]
  - Suspected counterfeit product [Not Recovered/Not Resolved]
  - Product physical issue [Unknown]
  - Influenza [Recovered/Resolved]
  - Irritability [Recovered/Resolved]
  - Drug ineffective [Recovered/Resolved]
  - Dizziness [Recovered/Resolved]
  - Product taste abnormal [Recovered/Resolved]
  - Pyrexia [Not Recovered/Not Resolved]
  - Wrong technique in product usage process [Not Recovered/Not Resolved]
  - Product quality issue [Unknown]
  - Drug withdrawal syndrome [Not Recovered/Not Resolved]
  - Nausea [Unknown]
  - Dyspnoea [Recovered/Resolved]
  - Headache [Unknown]

NARRATIVE: CASE EVENT DATE: 2016
